FAERS Safety Report 9298136 (Version 4)
Quarter: 2013Q2

REPORT INFORMATION
  Report Type: Spontaneous
  Country: IT (occurrence: IT)
  Receive Date: 20130520
  Receipt Date: 20130610
  Transmission Date: 20140414
  Serious: Yes (Hospitalization, Other)
  Sender: FDA-Public Use
  Company Number: IT-BRISTOL-MYERS SQUIBB COMPANY-18883140

PATIENT
  Age: 89 Year
  Sex: Female
  Weight: 70 kg

DRUGS (10)
  1. COUMADIN TABS 5 MG [Suspect]
     Indication: THROMBOSIS PROPHYLAXIS
     Dosage: LAST DOSE-15OCT12
     Route: 048
     Dates: start: 20111011
  2. COUMADIN TABS 5 MG [Interacting]
     Indication: ARRHYTHMIA PROPHYLAXIS
     Dosage: LAST DOSE-15OCT12
     Route: 048
     Dates: start: 20111011
  3. CEFTRIAXONE SODIUM [Interacting]
     Indication: BRONCHITIS
     Dosage: LAST DOSE-19OCT12
     Route: 030
     Dates: start: 20121009
  4. GLICLAZIDE [Concomitant]
     Indication: TYPE 2 DIABETES MELLITUS
     Route: 048
  5. TRENTAL [Concomitant]
     Indication: SKIN ULCER
     Route: 048
  6. LUVION [Concomitant]
     Dosage: TABS
  7. LASIX [Concomitant]
     Indication: HYPERTENSION
     Route: 048
  8. LANOXIN [Concomitant]
     Indication: ATRIAL FIBRILLATION
     Route: 048
  9. SERETIDE [Concomitant]
     Indication: BRONCHITIS CHRONIC
     Dosage: 1DF: 25/125MCG FOR INHALATION.
     Route: 013
  10. KARVEA [Concomitant]
     Indication: HYPERTENSION
     Route: 048

REACTIONS (8)
  - Vertigo [Recovered/Resolved]
  - Nausea [Recovered/Resolved]
  - Urinary tract infection [Unknown]
  - Chondrocalcinosis [Unknown]
  - Overdose [Unknown]
  - International normalised ratio increased [Recovered/Resolved]
  - Renal failure chronic [Unknown]
  - Drug interaction [Unknown]
